FAERS Safety Report 7239308-3 (Version None)
Quarter: 2011Q1

REPORT INFORMATION
  Report Type: 
  Country: None (occurrence: None)
  Receive Date: 20110121
  Receipt Date: 20110111
  Transmission Date: 20110831
  Serious: Yes (Congenital Anomaly)
  Sender: FDA-Public Use
  Company Number: US-GILEAD-2010-0032233

PATIENT
  Sex: Male
  Weight: 3.751 kg

DRUGS (4)
  1. TRUVADA [Suspect]
     Indication: HIV INFECTION
     Route: 064
     Dates: start: 20100318
  2. NORVIR [Concomitant]
     Indication: HIV INFECTION
     Route: 064
     Dates: start: 20091103
  3. COMBIVIR [Concomitant]
     Indication: HIV INFECTION
     Route: 064
     Dates: start: 20091103, end: 20100318
  4. PREZISTA [Concomitant]
     Indication: HIV INFECTION
     Route: 064
     Dates: start: 20091103

REACTIONS (2)
  - TRISOMY 21 [None]
  - CONGENITAL PYELOCALIECTASIS [None]
